FAERS Safety Report 18502039 (Version 1)
Quarter: 2020Q4

REPORT INFORMATION
  Report Type: Spontaneous
  Country: MY (occurrence: MY)
  Receive Date: 20201113
  Receipt Date: 20201113
  Transmission Date: 20210114
  Serious: Yes (Hospitalization, Other)
  Sender: FDA-Public Use
  Company Number: NVSC2020MY297398

PATIENT
  Age: 42 Year
  Sex: Female
  Weight: 81 kg

DRUGS (4)
  1. SANDOSTATIN LAR DEPOT [Suspect]
     Active Substance: OCTREOTIDE ACETATE
     Dosage: 30 MG, Q3W (3 WEEKLY)
     Route: 065
  2. SANDOSTATIN LAR DEPOT [Suspect]
     Active Substance: OCTREOTIDE ACETATE
     Dosage: 30 MG, QMO
     Route: 065
     Dates: start: 202003
  3. SANDOSTATIN LAR DEPOT [Suspect]
     Active Substance: OCTREOTIDE ACETATE
     Indication: NEUROENDOCRINE TUMOUR
     Dosage: 20 MG, QMO
     Route: 065
     Dates: start: 20161123, end: 201804
  4. SANDOSTATIN LAR DEPOT [Suspect]
     Active Substance: OCTREOTIDE ACETATE
     Dosage: 20 MG, QMO
     Route: 065
     Dates: start: 201901

REACTIONS (37)
  - Hypokalaemia [Unknown]
  - Haemoglobin decreased [Unknown]
  - Hepatomegaly [Unknown]
  - Retroperitoneal mass [Unknown]
  - C-reactive protein increased [Unknown]
  - Gastric mucosal lesion [Unknown]
  - Metastases to lymph nodes [Unknown]
  - Metastases to liver [Unknown]
  - Bone pain [Unknown]
  - Electrolyte imbalance [Unknown]
  - Dehydration [Unknown]
  - Hepatic lesion [Unknown]
  - Metastases to stomach [Unknown]
  - Blood urea increased [Unknown]
  - Weight increased [Unknown]
  - Inappropriate schedule of product administration [Unknown]
  - Blood alkaline phosphatase increased [Unknown]
  - Abdominal pain upper [Unknown]
  - Pyrexia [Unknown]
  - Necrosis [Unknown]
  - Bone lesion [Unknown]
  - Hyponatraemia [Unknown]
  - White blood cell count increased [Unknown]
  - Pancreatic cyst [Unknown]
  - Renal impairment [Unknown]
  - Metabolic acidosis [Unknown]
  - Tachycardia [Unknown]
  - Blood pressure systolic decreased [Unknown]
  - Superinfection [Unknown]
  - Malignant neoplasm progression [Unknown]
  - Blood creatinine increased [Unknown]
  - Splenic lesion [Unknown]
  - Spinal pain [Unknown]
  - Diarrhoea [Unknown]
  - Metastases to rectum [Unknown]
  - Metastases to bone [Unknown]
  - Metastases to pelvis [Unknown]

NARRATIVE: CASE EVENT DATE: 201712
